FAERS Safety Report 15531966 (Version 1)
Quarter: 2018Q4

REPORT INFORMATION
  Report Type: Spontaneous
  Country: RU (occurrence: RU)
  Receive Date: 20181019
  Receipt Date: 20181019
  Transmission Date: 20190205
  Serious: Yes (Life-Threatening, Other)
  Sender: FDA-Public Use
  Company Number: RU-B.I. PHARMACEUTICALS,INC./RIDGEFIELD-2018-BI-050893

PATIENT
  Age: 68 Year
  Sex: Female
  Weight: 90 kg

DRUGS (1)
  1. PRADAXA [Suspect]
     Active Substance: DABIGATRAN ETEXILATE MESYLATE
     Indication: ATRIAL FIBRILLATION
     Route: 048
     Dates: start: 2017, end: 20180907

REACTIONS (3)
  - Coronary artery disease [Recovered/Resolved with Sequelae]
  - Arteriosclerosis coronary artery [Recovered/Resolved with Sequelae]
  - Angina unstable [Recovered/Resolved with Sequelae]

NARRATIVE: CASE EVENT DATE: 20180907
